FAERS Safety Report 9511663 (Version 2)
Quarter: 2013Q4

REPORT INFORMATION
  Report Type: Spontaneous
  Country: FR (occurrence: FR)
  Receive Date: 20130910
  Receipt Date: 20131104
  Transmission Date: 20140711
  Serious: Yes (Other)
  Sender: FDA-Public Use
  Company Number: FR-ASTELLAS-2013EU007563

PATIENT
  Age: 53 Year
  Sex: Female

DRUGS (14)
  1. PROGRAF [Suspect]
     Dosage: UNK
     Route: 065
  2. ADVAGRAF [Interacting]
     Dosage: UNK MG, UNKNOWN/D
     Route: 065
  3. ADVAGRAF [Interacting]
     Dosage: 5 MG, UNKNOWN/D
     Route: 065
  4. MODIGRAF [Interacting]
     Dosage: 0.2 MG, OTHER
     Route: 065
  5. TELAPREVIR [Interacting]
     Indication: HEPATITIS C
     Dosage: 750 MG, TID
     Route: 065
  6. CYCLOSPORINE [Suspect]
     Indication: LIVER TRANSPLANT
     Dosage: UNK
     Route: 065
  7. CORTICOSTEROID NOS [Suspect]
     Indication: LIVER TRANSPLANT
     Dosage: UNK
     Route: 065
  8. MYCOPHENOLATE MOFETIL [Suspect]
     Indication: LIVER TRANSPLANT
     Dosage: UNK
     Route: 065
  9. ABACAVIR W/LAMIVUDINE [Concomitant]
     Indication: ANTIRETROVIRAL THERAPY
     Dosage: UNK
     Route: 065
  10. TENOFOVIR [Concomitant]
     Indication: ANTIRETROVIRAL THERAPY
     Dosage: 300 MG, UNKNOWN/D
     Route: 065
  11. INTERFERON ALFA [Concomitant]
     Indication: HEPATITIS C
     Dosage: 1.5 UG/KG, WEEKLY
     Route: 065
  12. INTERFERON ALFA [Concomitant]
     Dosage: 45 UG, WEEKLY
     Route: 065
  13. RIBAVIRIN [Concomitant]
     Indication: HEPATITIS C
     Dosage: 600 MG, UNKNOWN/D
     Route: 065
  14. RIBAVIRIN [Concomitant]
     Dosage: 400 MG, UNKNOWN/D
     Route: 065

REACTIONS (6)
  - Drug interaction [Recovered/Resolved]
  - Hepatitis C [Recovered/Resolved]
  - Hepatitis cholestatic [Recovered/Resolved]
  - Anaemia [Recovered/Resolved]
  - Thrombocytopenia [Recovered/Resolved]
  - Neutropenia [Recovered/Resolved]
